FAERS Safety Report 13243610 (Version 1)
Quarter: 2017Q1

REPORT INFORMATION
  Report Type: Spontaneous
  Country: CN (occurrence: CN)
  Receive Date: 20170216
  Receipt Date: 20170216
  Transmission Date: 20170428
  Serious: Yes (Hospitalization)
  Sender: FDA-Public Use
  Company Number: CN-009507513-1702CHN004967

PATIENT
  Age: 31 Year
  Sex: Male
  Weight: 88 kg

DRUGS (2)
  1. HYALURONATE SODIUM [Concomitant]
     Active Substance: HYALURONATE SODIUM
     Indication: SYNOVITIS
     Dosage: 20 MG, QD
     Route: 014
     Dates: start: 20161123, end: 20161123
  2. DIPROSPAN [Suspect]
     Active Substance: BETAMETHASONE DIPROPIONATE\BETAMETHASONE SODIUM PHOSPHATE
     Indication: SYNOVITIS
     Dosage: 1 ML, QD
     Route: 014
     Dates: start: 20161123, end: 20161123

REACTIONS (1)
  - Muscular weakness [Recovered/Resolved]

NARRATIVE: CASE EVENT DATE: 20161124
